FAERS Safety Report 9975895 (Version 2)
Quarter: 2014Q1

REPORT INFORMATION
  Report Type: Spontaneous
  Country: US (occurrence: US)
  Receive Date: 20140306
  Receipt Date: 20140331
  Transmission Date: 20141002
  Serious: No
  Sender: FDA-Public Use
  Company Number: US-PFIZER INC-2014059909

PATIENT
  Age: 74 Year
  Sex: Male

DRUGS (16)
  1. SUTENT [Suspect]
     Indication: RENAL CANCER
     Dosage: 50 MG, (X 4 WKS)
     Route: 048
     Dates: start: 20140214, end: 20140224
  2. AMLODIPINE BESYLATE [Concomitant]
     Dosage: 5 MG, (TAKE 1 TABLET ORAL AT BEDTIME)
     Route: 048
  3. ASPIRIN [Concomitant]
     Dosage: 1 DF, DAILY (TAKE TABLET ORAL DAILY)
     Route: 048
  4. ATENOLOL [Concomitant]
     Dosage: 50 MG, DAILY
     Route: 048
  5. CYCLOBENZAPRINE HCL [Concomitant]
     Dosage: 10 MG, AS NEEDED
     Route: 048
  6. DIAZEPAM [Concomitant]
     Dosage: 2 MG, (TAKE 1 TABLET ORAL TWICE DAILY AS NEEDED)
     Route: 048
  7. DULOXETINE HYDROCHLORIDE [Concomitant]
     Dosage: 60 MG, (TAKE 1 CAPSULE DELAYED RELEASE PARTICLES ORAL EVERY AM)
     Route: 048
  8. GLIPIZIDE [Concomitant]
     Dosage: 10 MG, DAILY
     Route: 048
  9. HYDROCHLOROTHIAZIDE [Concomitant]
     Dosage: 25 MG, DAILY
     Route: 048
  10. LOVASTATIN [Concomitant]
     Dosage: 40 MG, (TAKE 1 TABLET ORAL AT BEDTIME)
     Route: 048
  11. METFORMIN [Concomitant]
     Dosage: 500 MG, 2X/DAY
     Route: 048
  12. OXYCODONE/PARACETAMOL [Concomitant]
     Dosage: 5-325 MG, 2X/DAY
     Route: 048
  13. PREGABALIN [Concomitant]
     Dosage: 50 MG, 2X/DAY
     Route: 048
  14. PREVACID [Concomitant]
     Dosage: 30 MG, (TAKE 1 CAPSULE DELAYED RELEASE ORAL DAILY AS NEEDED)
     Route: 048
  15. TRADJENTA [Concomitant]
     Dosage: 5 MG, DAILY
     Route: 048
  16. TRILIPIX [Concomitant]
     Dosage: 135 MG, DAILY
     Route: 048

REACTIONS (7)
  - Fatigue [Recovered/Resolved]
  - Speech disorder [Unknown]
  - Dysarthria [Unknown]
  - Local swelling [Unknown]
  - Swollen tongue [Unknown]
  - Speech disorder [Unknown]
  - Superior vena cava syndrome [Unknown]
